FAERS Safety Report 6328359-9 (Version None)
Quarter: 2009Q3

REPORT INFORMATION
  Report Type: 
  Country: None (occurrence: None)
  Receive Date: 20090825
  Receipt Date: 20090430
  Transmission Date: 20100115
  Serious: No
  Sender: FDA-Public Use
  Company Number: US-ABBOTT-09P-163-0570942-00

PATIENT
  Sex: Female
  Weight: 68.1 kg

DRUGS (4)
  1. SYNTHROID [Suspect]
     Indication: HYPOTHYROIDISM
     Dates: start: 20071101, end: 20090301
  2. SYNTHROID [Suspect]
     Dates: start: 20090301, end: 20090428
  3. SYNTHROID [Suspect]
     Dates: start: 20090428
  4. ESTROGEN [Suspect]
     Indication: DRUG USE FOR UNKNOWN INDICATION
     Dates: start: 20090301

REACTIONS (1)
  - DRUG INEFFECTIVE [None]
